FAERS Safety Report 7418160-7 (Version None)
Quarter: 2011Q2

REPORT INFORMATION
  Report Type: 
  Country: None (occurrence: None)
  Receive Date: 20110415
  Receipt Date: 20110412
  Transmission Date: 20111010
  Serious: Yes (Other)
  Sender: FDA-Public Use
  Company Number: TR-ABBOTT-11P-161-0718347-00

PATIENT
  Age: 31 Year

DRUGS (2)
  1. HUMIRA [Suspect]
     Indication: CROHN'S DISEASE
     Route: 058
     Dates: start: 20100701, end: 20110401
  2. HUMIRA [Suspect]
     Indication: INTESTINAL FISTULA

REACTIONS (2)
  - SKIN LESION [None]
  - PSORIASIS [None]
